FAERS Safety Report 7539841-0 (Version None)
Quarter: 2011Q2

REPORT INFORMATION
  Report Type: 
  Country: None (occurrence: None)
  Receive Date: 20110610
  Receipt Date: 20110601
  Transmission Date: 20111010
  Serious: Yes (Other)
  Sender: FDA-Public Use
  Company Number: GB-SANOFI-AVENTIS-2011SA034571

PATIENT
  Age: 78 Year
  Sex: Female
  Weight: 66 kg

DRUGS (15)
  1. MULTAQ [Suspect]
     Route: 048
     Dates: start: 20110406, end: 20110515
  2. FUROSEMIDE [Concomitant]
     Dates: start: 20110415, end: 20110513
  3. PREDNISOLONE [Concomitant]
     Dates: start: 20110126
  4. TRIMOVATE [Concomitant]
     Dates: start: 20110214, end: 20110221
  5. FUROSEMIDE [Concomitant]
     Dates: start: 20110311, end: 20110408
  6. TRIMOVATE [Concomitant]
     Dates: start: 20110414, end: 20110421
  7. MULTAQ [Suspect]
     Route: 048
     Dates: start: 20110520
  8. WARFARIN SODIUM [Concomitant]
     Dates: start: 20110406
  9. LOPERAMIDE [Concomitant]
     Dates: start: 20110126, end: 20110515
  10. PANTOPRAZOLE [Concomitant]
     Dates: start: 20110126, end: 20110420
  11. TRIMOVATE [Concomitant]
     Dates: start: 20110517
  12. ALENDRONIC ACID [Concomitant]
     Dates: start: 20110126
  13. HYDROCORTISONE [Concomitant]
     Dates: start: 20110517
  14. TIOTROPIUM BROMIDE [Concomitant]
     Dates: start: 20110126, end: 20110507
  15. PANTOPRAZOLE [Concomitant]
     Dates: start: 20110426

REACTIONS (1)
  - SOLAR URTICARIA [None]
